FAERS Safety Report 18237615 (Version 3)
Quarter: 2021Q2

REPORT INFORMATION
  Report Type: Spontaneous
  Country: DE (occurrence: DE)
  Receive Date: 20200907
  Receipt Date: 20210614
  Transmission Date: 20210717
  Serious: Yes (Other)
  Sender: FDA-Public Use
  Company Number: DE-PFIZER INC-2020342383

PATIENT
  Sex: Male

DRUGS (5)
  1. PANTOPRAZOLE [Concomitant]
     Active Substance: PANTOPRAZOLE
     Indication: DYSPEPSIA
     Dosage: 20 MG, 1X/DAY
  2. PREDNISOLONE. [Concomitant]
     Active Substance: PREDNISOLONE
     Dosage: 5 MG, 1X/DAY (HIGHER DOSE AS NECESSARY (DURING DETERIORATION OF RA))
  3. METHOTREXATE SODIUM. [Suspect]
     Active Substance: METHOTREXATE SODIUM
     Indication: RHEUMATOID ARTHRITIS
     Dosage: 15 MG
     Route: 058
  4. CANDECOR HCT [Concomitant]
     Indication: HYPERTENSION
     Dosage: 1 DF, 1X/DAY
  5. FOLIC ACID. [Concomitant]
     Active Substance: FOLIC ACID
     Dosage: 10 MG, CYCLIC, THE DAY AFTER MTX INTAKE

REACTIONS (11)
  - Polyneuropathy [Not Recovered/Not Resolved]
  - Productive cough [Recovered/Resolved]
  - Conjunctivitis [Recovered/Resolved]
  - Erectile dysfunction [Not Recovered/Not Resolved]
  - Photosensitivity reaction [Not Recovered/Not Resolved]
  - Joint swelling [Not Recovered/Not Resolved]
  - Gynaecomastia [Not Recovered/Not Resolved]
  - Loss of libido [Not Recovered/Not Resolved]
  - Alopecia [Recovered/Resolved]
  - Peripheral swelling [Not Recovered/Not Resolved]
  - Myalgia [Recovered/Resolved]
